FAERS Safety Report 13868942 (Version 5)
Quarter: 2021Q1

REPORT INFORMATION
  Report Type: Report from Study
  Country: BR (occurrence: BR)
  Receive Date: 20170815
  Receipt Date: 20210107
  Transmission Date: 20210419
  Serious: Yes (Death, Other)
  Sender: FDA-Public Use
  Company Number: PHHY2017BR115060

PATIENT
  Age: 53 Year
  Sex: Female
  Weight: 78 kg

DRUGS (15)
  1. COSENTYX [Suspect]
     Active Substance: SECUKINUMAB
     Indication: PSORIASIS
     Dosage: 300 MG, QMO
     Route: 058
     Dates: start: 20161019
  2. COSENTYX [Suspect]
     Active Substance: SECUKINUMAB
     Dosage: 500 MG, UNKNOWN
     Route: 058
  3. COSENTYX [Suspect]
     Active Substance: SECUKINUMAB
     Indication: PSORIATIC ARTHROPATHY
     Dosage: 300 MG, QMO
     Route: 058
     Dates: start: 20161109
  4. NEO FOLICO [Concomitant]
     Indication: PRODUCT USED FOR UNKNOWN INDICATION
     Dosage: 1 DF, QD
     Route: 048
  5. COSENTYX [Suspect]
     Active Substance: SECUKINUMAB
     Dosage: 300 MG, UNK
     Route: 058
     Dates: start: 20180826
  6. METHOTREXATE. [Concomitant]
     Active Substance: METHOTREXATE
     Indication: PSORIASIS
     Dosage: 4 DF, QW
     Route: 048
  7. COSENTYX [Suspect]
     Active Substance: SECUKINUMAB
     Dosage: UNK
     Route: 058
     Dates: start: 20181121
  8. FLUOXETINE [Concomitant]
     Active Substance: FLUOXETINE HYDROCHLORIDE
     Indication: ANXIETY
     Dosage: UNK
     Route: 065
  9. COSENTYX [Suspect]
     Active Substance: SECUKINUMAB
     Dosage: UNK
     Route: 058
     Dates: start: 20170908
  10. COSENTYX [Suspect]
     Active Substance: SECUKINUMAB
     Dosage: UNK
     Route: 065
     Dates: end: 20200217
  11. COSENTYX [Suspect]
     Active Substance: SECUKINUMAB
     Dosage: LAST APPLICATION ON 07 NOV
     Route: 058
  12. SIMVASTATIN. [Concomitant]
     Active Substance: SIMVASTATIN
     Indication: LIVER DISORDER
     Dosage: 25 MG, QD (4 YEARS AGO)
     Route: 048
  13. COSENTYX [Suspect]
     Active Substance: SECUKINUMAB
     Dosage: UNK
     Route: 058
     Dates: start: 20170809
  14. METFORMIN [Concomitant]
     Active Substance: METFORMIN HYDROCHLORIDE
     Indication: GLUCOSE TOLERANCE IMPAIRED
     Dosage: 2 DF, QD (4 YEARS AGO)
     Route: 048
  15. METFORMIN [Concomitant]
     Active Substance: METFORMIN HYDROCHLORIDE
     Indication: DIABETES MELLITUS

REACTIONS (27)
  - Cardiac failure [Fatal]
  - Pulmonary oedema [Unknown]
  - Tissue infiltration [Recovering/Resolving]
  - Back pain [Recovering/Resolving]
  - Acute pulmonary oedema [Fatal]
  - Scab [Recovering/Resolving]
  - Malaise [Unknown]
  - Cardiac disorder [Unknown]
  - Nasopharyngitis [Recovered/Resolved with Sequelae]
  - Inappropriate schedule of product administration [Unknown]
  - Gait disturbance [Recovered/Resolved with Sequelae]
  - Dysarthria [Not Recovered/Not Resolved]
  - Hypertension [Fatal]
  - Joint stiffness [Recovering/Resolving]
  - Incorrect dose administered [Unknown]
  - Skin lesion [Not Recovered/Not Resolved]
  - Arthritis [Recovered/Resolved with Sequelae]
  - Dyspnoea [Unknown]
  - Gait inability [Recovering/Resolving]
  - Fluid retention [Unknown]
  - Psoriasis [Not Recovered/Not Resolved]
  - Weight decreased [Recovered/Resolved with Sequelae]
  - Wound [Not Recovered/Not Resolved]
  - Movement disorder [Recovering/Resolving]
  - Arthralgia [Recovered/Resolved with Sequelae]
  - Nail disorder [Recovering/Resolving]
  - Cardiomegaly [Unknown]

NARRATIVE: CASE EVENT DATE: 20170712
